FAERS Safety Report 4849167-1 (Version None)
Quarter: 2005Q4

REPORT INFORMATION
  Report Type: 
  Country: None (occurrence: None)
  Receive Date: 20051209
  Receipt Date: 20051129
  Transmission Date: 20060501
  Serious: Yes (Hospitalization, Other)
  Sender: FDA-Public Use
  Company Number: US-MERCK-0512USA00167

PATIENT
  Age: 69 Year
  Sex: Female
  Weight: 73 kg

DRUGS (14)
  1. VIOXX [Suspect]
     Indication: ARTHRITIS
     Route: 048
     Dates: start: 20020502, end: 20021027
  2. PLAVIX [Concomitant]
     Route: 065
  3. CARAFATE [Concomitant]
     Route: 065
  4. OXYCODONE AND ACETAMINOPHEN [Concomitant]
     Route: 065
  5. ASPIRIN [Concomitant]
     Route: 065
  6. TOPROL-XL [Concomitant]
     Route: 065
  7. CHROMAGEN FORTE [Concomitant]
     Route: 065
  8. ACETAMINOPHEN AND PROPOXYPHENE NAPSYLATE [Concomitant]
     Route: 065
  9. ESTRADERM [Concomitant]
     Route: 065
  10. ZESTRIL [Concomitant]
     Route: 065
  11. NORVASC [Concomitant]
     Route: 065
  12. LIPITOR [Concomitant]
     Route: 065
  13. LIPITOR [Concomitant]
     Route: 065
  14. ULTRAM [Concomitant]
     Route: 065

REACTIONS (10)
  - BRONCHITIS [None]
  - CARDIAC DISORDER [None]
  - CHEST PAIN [None]
  - CHRONIC OBSTRUCTIVE PULMONARY DISEASE [None]
  - EMOTIONAL DISTRESS [None]
  - GASTROINTESTINAL INFECTION [None]
  - GASTROOESOPHAGEAL REFLUX DISEASE [None]
  - HYPERLIPIDAEMIA [None]
  - IRON DEFICIENCY ANAEMIA [None]
  - MYOCARDIAL INFARCTION [None]
